FAERS Safety Report 9589800 (Version 1)
Quarter: 2013Q4

REPORT INFORMATION
  Report Type: Spontaneous
  Country: US (occurrence: US)
  Receive Date: 20131003
  Receipt Date: 20131003
  Transmission Date: 20140711
  Serious: No
  Sender: FDA-Public Use
  Company Number: US-AMGEN-USASP2012073097

PATIENT
  Age: 39 Year
  Sex: Male

DRUGS (5)
  1. ENBREL [Suspect]
     Indication: PSORIATIC ARTHROPATHY
     Dosage: 50 MG, QWK
     Route: 058
  2. TRAZODONE [Concomitant]
     Dosage: 100 MG, UNK
  3. TYLENOL                            /00020001/ [Concomitant]
     Dosage: 325 MG, UNK
  4. IBUPROFEN [Concomitant]
     Dosage: 200 MG, UNK
  5. AMBIEN [Concomitant]
     Dosage: 5 MG, UNK

REACTIONS (2)
  - Pain [Unknown]
  - Adverse event [Unknown]
